FAERS Safety Report 8537761-6 (Version None)
Quarter: 2012Q3

REPORT INFORMATION
  Report Type: 
  Country: None (occurrence: None)
  Receive Date: 20120725
  Receipt Date: 20120629
  Transmission Date: 20120928
  Serious: No
  Sender: FDA-Public Use
  Company Number: US-ASTRAZENECA-2012SE35851

PATIENT
  Age: 14 Year
  Sex: Male
  Weight: 36.3 kg

DRUGS (3)
  1. PULMICORT FLEXHALER [Suspect]
     Indication: ASTHMA
     Route: 055
     Dates: start: 20110801
  2. PULMICORT FLEXHALER [Suspect]
     Route: 055
  3. ALBUTEROL [Concomitant]
     Indication: ASTHMA

REACTIONS (3)
  - OFF LABEL USE [None]
  - NASOPHARYNGITIS [None]
  - PYREXIA [None]
